FAERS Safety Report 15508538 (Version 1)
Quarter: 2018Q4

REPORT INFORMATION
  Report Type: Spontaneous
  Country: KR (occurrence: KR)
  Receive Date: 20181016
  Receipt Date: 20181016
  Transmission Date: 20190205
  Serious: Yes (Death)
  Sender: FDA-Public Use
  Company Number: KR-PFIZER INC-2018417106

PATIENT
  Age: 13 Year
  Sex: Male

DRUGS (18)
  1. VORICONAZOLE. [Suspect]
     Active Substance: VORICONAZOLE
     Indication: ANTIFUNGAL TREATMENT
     Dosage: 5 MG, UNK (INTRAVENTRICULAR INJECTION)
  2. METRONIDAZOLE. [Suspect]
     Active Substance: METRONIDAZOLE
     Indication: ANTIFUNGAL TREATMENT
  3. MEROPENEM. [Suspect]
     Active Substance: MEROPENEM
     Indication: ANTIFUNGAL TREATMENT
  4. VANCOMYCIN HCL [Suspect]
     Active Substance: VANCOMYCIN HYDROCHLORIDE
     Indication: BRAIN ABSCESS
     Dosage: UNK
     Route: 042
  5. AMPHOTERICIN B. [Suspect]
     Active Substance: AMPHOTERICIN B
     Indication: PSEUDALLESCHERIA INFECTION
     Dosage: UNK
     Route: 042
  6. ISOCONAZOLE [Suspect]
     Active Substance: ISOCONAZOLE
     Indication: PSEUDALLESCHERIA INFECTION
     Dosage: UNK
     Route: 042
  7. ITRACONAZOLE. [Suspect]
     Active Substance: ITRACONAZOLE
     Indication: PSEUDALLESCHERIA INFECTION
     Dosage: UNK
  8. VORICONAZOLE. [Suspect]
     Active Substance: VORICONAZOLE
     Indication: PSEUDALLESCHERIA INFECTION
     Dosage: UNK
     Route: 042
  9. VANCOMYCIN HCL [Suspect]
     Active Substance: VANCOMYCIN HYDROCHLORIDE
     Indication: CNS VENTRICULITIS
  10. CEFOTAXIME [Suspect]
     Active Substance: CEFOTAXIME SODIUM
     Indication: PSEUDALLESCHERIA INFECTION
     Dosage: UNK
     Route: 042
  11. MEROPENEM. [Suspect]
     Active Substance: MEROPENEM
     Indication: PSEUDALLESCHERIA INFECTION
     Dosage: UNK
     Route: 042
  12. ISOCONAZOLE [Suspect]
     Active Substance: ISOCONAZOLE
     Indication: ANTIFUNGAL TREATMENT
  13. ITRACONAZOLE. [Suspect]
     Active Substance: ITRACONAZOLE
     Indication: ANTIFUNGAL TREATMENT
  14. METRONIDAZOLE. [Suspect]
     Active Substance: METRONIDAZOLE
     Indication: PSEUDALLESCHERIA INFECTION
     Dosage: UNK
     Route: 042
  15. COTRIM [Suspect]
     Active Substance: SULFAMETHOXAZOLE\TRIMETHOPRIM
     Indication: PSEUDALLESCHERIA INFECTION
     Dosage: UNK
     Route: 042
  16. AMPHOTERICIN B. [Suspect]
     Active Substance: AMPHOTERICIN B
     Indication: ANTIFUNGAL TREATMENT
     Dosage: UNK
     Route: 042
  17. COTRIM [Suspect]
     Active Substance: SULFAMETHOXAZOLE\TRIMETHOPRIM
     Indication: ANTIFUNGAL TREATMENT
  18. CEFOTAXIME [Suspect]
     Active Substance: CEFOTAXIME SODIUM
     Indication: ANTIFUNGAL TREATMENT

REACTIONS (1)
  - Drug ineffective [Fatal]
